FAERS Safety Report 23755573 (Version 2)
Quarter: 2024Q2

REPORT INFORMATION
  Report Type: Spontaneous
  Country: JP (occurrence: JP)
  Receive Date: 20240418
  Receipt Date: 20240521
  Transmission Date: 20240716
  Serious: Yes (Hospitalization, Other)
  Sender: FDA-Public Use
  Company Number: JP-ASTELLAS-2024JP002481

PATIENT
  Age: 50 Year
  Sex: Female

DRUGS (24)
  1. PROGRAF [Suspect]
     Active Substance: TACROLIMUS
     Indication: Dermatomyositis
     Dosage: 4 MG/DAY, UNKNOWN FREQ.
     Route: 065
     Dates: start: 202104
  2. PROGRAF [Suspect]
     Active Substance: TACROLIMUS
     Indication: Interstitial lung disease
     Dosage: 5 MG/DAY, UNKNOWN FREQ.
     Route: 065
  3. PROGRAF [Suspect]
     Active Substance: TACROLIMUS
     Dosage: 6 MG/DAY, UNKNOWN FREQ.
     Route: 065
  4. PROGRAF [Suspect]
     Active Substance: TACROLIMUS
     Dosage: 5 MG/DAY, UNKNOWN FREQ.
     Route: 065
  5. PROGRAF [Suspect]
     Active Substance: TACROLIMUS
     Dosage: 6.5 MG/DAY, UNKNOWN FREQ.
     Route: 065
  6. PROGRAF [Suspect]
     Active Substance: TACROLIMUS
     Dosage: 6 MG/DAY, UNKNOWN FREQ.
     Route: 065
  7. PREDNISOLONE [Suspect]
     Active Substance: PREDNISOLONE
     Indication: Dermatomyositis
     Dosage: 1 MG/KG (60 MG/DAY), ONCE DAILY
     Route: 065
     Dates: start: 202104
  8. PREDNISOLONE [Suspect]
     Active Substance: PREDNISOLONE
     Indication: Interstitial lung disease
     Route: 065
  9. PREDNISOLONE [Suspect]
     Active Substance: PREDNISOLONE
     Route: 065
  10. PREDNISOLONE [Suspect]
     Active Substance: PREDNISOLONE
     Route: 065
  11. PREDNISOLONE [Suspect]
     Active Substance: PREDNISOLONE
     Route: 065
  12. PREDNISOLONE [Suspect]
     Active Substance: PREDNISOLONE
     Route: 065
  13. PREDNISOLONE [Suspect]
     Active Substance: PREDNISOLONE
     Route: 065
  14. PREDNISOLONE [Suspect]
     Active Substance: PREDNISOLONE
     Route: 065
  15. PREDNISOLONE [Suspect]
     Active Substance: PREDNISOLONE
     Route: 065
  16. PREDNISOLONE [Suspect]
     Active Substance: PREDNISOLONE
     Route: 065
  17. PREDNISOLONE [Suspect]
     Active Substance: PREDNISOLONE
     Route: 065
  18. PREDNISOLONE [Suspect]
     Active Substance: PREDNISOLONE
     Route: 065
  19. PREDNISOLONE [Suspect]
     Active Substance: PREDNISOLONE
     Route: 065
  20. PREDNISOLONE [Suspect]
     Active Substance: PREDNISOLONE
     Route: 065
  21. PREDNISOLONE [Suspect]
     Active Substance: PREDNISOLONE
     Route: 065
  22. PREDNISOLONE [Suspect]
     Active Substance: PREDNISOLONE
     Route: 065
  23. CYCLOPHOSPHAMIDE [Suspect]
     Active Substance: CYCLOPHOSPHAMIDE
     Indication: Dermatomyositis
     Route: 042
     Dates: start: 202104
  24. CYCLOPHOSPHAMIDE [Suspect]
     Active Substance: CYCLOPHOSPHAMIDE
     Indication: Interstitial lung disease
     Dosage: UNK UNK, UNKNOWN FREQ.
     Route: 042

REACTIONS (1)
  - Alveolar proteinosis [Recovered/Resolved]
